FAERS Safety Report 6947731-7 (Version None)
Quarter: 2010Q3

REPORT INFORMATION
  Report Type: 
  Country: None (occurrence: None)
  Receive Date: 20100828
  Receipt Date: 20090928
  Transmission Date: 20110219
  Serious: No
  Sender: FDA-Public Use
  Company Number: US-ABBOTT-09P-163-0599889-00

PATIENT
  Sex: Male
  Weight: 118.04 kg

DRUGS (17)
  1. NIASPAN [Suspect]
     Indication: TOTAL CHOLESTEROL/HDL RATIO ABNORMAL
     Route: 048
     Dates: start: 20090918
  2. ASPIRIN [Suspect]
     Indication: FLUSHING
     Route: 048
     Dates: end: 20090926
  3. ASPIRIN [Suspect]
     Indication: PROPHYLAXIS
  4. LIPITOR [Concomitant]
     Indication: BLOOD CHOLESTEROL
     Route: 048
     Dates: start: 20090918
  5. LIPITOR [Concomitant]
     Route: 048
  6. ALLEGRA [Concomitant]
     Indication: MENIERE'S DISEASE
     Route: 048
  7. ALLEGRA [Concomitant]
     Indication: SEASONAL ALLERGY
  8. HYDROCHLOROTHIAZIDE [Concomitant]
     Indication: MENIERE'S DISEASE
     Route: 048
  9. NASACORT [Concomitant]
     Indication: MENIERE'S DISEASE
     Dosage: 1 SPRAY EACH NOSTRIL
     Route: 045
  10. PRILOSEC [Concomitant]
     Indication: GASTROOESOPHAGEAL REFLUX DISEASE
     Route: 048
  11. TIMOLOL OPHTH [Concomitant]
     Indication: GLAUCOMA
     Dosage: 1 DROP RIGHT EYE
     Route: 047
  12. VITAMIN A [Concomitant]
     Indication: RETINITIS PIGMENTOSA
     Route: 048
  13. VITAMIN D3 [Concomitant]
     Indication: VITAMIN D DECREASED
     Route: 048
  14. NAPROXEN SODIUM [Concomitant]
     Indication: ARTHRITIS
     Route: 048
  15. DORZOLAMIDE OPHTH [Concomitant]
     Indication: RETINAL SCAR
     Dosage: BID 1 OD
     Route: 047
  16. XIBROM [Concomitant]
     Indication: RETINAL SCAR
     Dosage: RIGHT EYE
     Route: 047
     Dates: start: 20080101
  17. POTASSIUM CHLORIDE [Concomitant]
     Indication: ELECTROLYTE SUBSTITUTION THERAPY
     Route: 048

REACTIONS (3)
  - PRURITUS [None]
  - SKIN BURNING SENSATION [None]
  - TINNITUS [None]
